FAERS Safety Report 23624251 (Version 1)
Quarter: 2024Q1

REPORT INFORMATION
  Report Type: Spontaneous
  Country: US (occurrence: US)
  Receive Date: 20240312
  Receipt Date: 20240312
  Transmission Date: 20240410
  Serious: Yes (Other)
  Sender: FDA-Public Use
  Company Number: US-GILEAD-2024-0665245

PATIENT
  Age: 34 Year
  Sex: Female

DRUGS (5)
  1. LENACAPAVIR [Suspect]
     Active Substance: LENACAPAVIR
     Indication: Product used for unknown indication
     Route: 065
  2. IBALIZUMAB [Concomitant]
     Active Substance: IBALIZUMAB
  3. FOSTEMSAVIR [Concomitant]
     Active Substance: FOSTEMSAVIR
  4. DORAVIRINE [Concomitant]
     Active Substance: DORAVIRINE
  5. DOLUTEGRAVIR [Concomitant]
     Active Substance: DOLUTEGRAVIR

REACTIONS (5)
  - Neonatal infection [Unknown]
  - Chronic kidney disease [Unknown]
  - Injection site pain [Unknown]
  - Nodule [Unknown]
  - Pain [Unknown]
